FAERS Safety Report 5003685-4 (Version None)
Quarter: 2006Q2

REPORT INFORMATION
  Report Type: 
  Country: None (occurrence: None)
  Receive Date: 20060516
  Receipt Date: 20051004
  Transmission Date: 20061013
  Serious: Yes (Hospitalization, Other)
  Sender: FDA-Public Use
  Company Number: US-MERCK-0510USA03589

PATIENT
  Age: 75 Year
  Sex: Female
  Weight: 68 kg

DRUGS (21)
  1. VIOXX [Suspect]
     Indication: OSTEOARTHRITIS
     Route: 048
     Dates: start: 20010101, end: 20041001
  2. TYLENOL (CAPLET) [Concomitant]
     Route: 065
  3. ASPIRIN [Concomitant]
     Route: 065
  4. PLAVIX [Concomitant]
     Route: 065
  5. UNIVASC [Concomitant]
     Route: 065
  6. CELEXA [Concomitant]
     Route: 065
  7. ULTRAM [Concomitant]
     Route: 065
  8. ISOSORBIDE [Concomitant]
     Route: 065
  9. TOPROL-XL [Concomitant]
     Route: 065
  10. NORVASC [Concomitant]
     Route: 065
  11. FOSAMAX [Concomitant]
     Route: 065
  12. RANITIDINE [Concomitant]
     Route: 065
  13. TRAZODONE HYDROCHLORIDE [Concomitant]
     Route: 065
  14. BASA [Concomitant]
     Route: 065
  15. NITRO [Concomitant]
     Route: 065
  16. LYSINE [Concomitant]
     Route: 065
  17. NEXIUM [Concomitant]
     Route: 065
  18. PRAVACHOL [Concomitant]
     Route: 065
  19. FIORICET TABLETS [Concomitant]
     Route: 065
  20. MOBIC [Concomitant]
     Route: 065
  21. ZANTAC [Concomitant]
     Route: 065

REACTIONS (20)
  - ANGINA PECTORIS [None]
  - ANOREXIA [None]
  - ARTHRALGIA [None]
  - BACK PAIN [None]
  - BLADDER DISORDER [None]
  - BLOOD PRESSURE INCREASED [None]
  - CARPAL TUNNEL SYNDROME [None]
  - CHEST PAIN [None]
  - CORONARY ARTERY DISEASE [None]
  - FATIGUE [None]
  - HAND FRACTURE [None]
  - HEADACHE [None]
  - HYPERTENSION [None]
  - HYPOTENSION [None]
  - MYOCARDIAL INFARCTION [None]
  - OEDEMA PERIPHERAL [None]
  - OESOPHAGEAL STENOSIS [None]
  - PAIN IN EXTREMITY [None]
  - PALPITATIONS [None]
  - WEIGHT DECREASED [None]
